FAERS Safety Report 8903953 (Version 3)
Quarter: 2013Q2

REPORT INFORMATION
  Report Type: Spontaneous
  Country: US (occurrence: US)
  Receive Date: 20121113
  Receipt Date: 20130513
  Transmission Date: 20140414
  Serious: Yes (Hospitalization, Other)
  Sender: FDA-Public Use
  Company Number: PHEH2012US022320

PATIENT
  Age: 40 Year
  Sex: Male

DRUGS (1)
  1. GILENYA [Suspect]
     Indication: MULTIPLE SCLEROSIS
     Dosage: 0.5 MG, QD
     Route: 048
     Dates: start: 201201, end: 20121026

REACTIONS (10)
  - Meningitis aseptic [Recovered/Resolved]
  - Clumsiness [Recovered/Resolved]
  - Personality change [Recovered/Resolved]
  - Cognitive disorder [Recovered/Resolved]
  - CSF white blood cell count increased [Recovered/Resolved]
  - CSF protein increased [Recovered/Resolved]
  - Myalgia [Recovered/Resolved]
  - Confusional state [Unknown]
  - CSF lymphocyte count increased [Unknown]
  - CSF monocyte count increased [Unknown]
